FAERS Safety Report 9087520 (Version 3)
Quarter: 2013Q2

REPORT INFORMATION
  Report Type: Spontaneous
  Country: BR (occurrence: BR)
  Receive Date: 20130217
  Receipt Date: 20130408
  Transmission Date: 20140414
  Serious: Yes (Other)
  Sender: FDA-Public Use
  Company Number: BR-JNJFOC-20130203784

PATIENT
  Age: 58 Year
  Sex: Female
  Weight: 75 kg

DRUGS (6)
  1. REMICADE [Suspect]
     Indication: RHEUMATOID ARTHRITIS
     Route: 042
     Dates: start: 20130103
  2. REMICADE [Suspect]
     Indication: RHEUMATOID ARTHRITIS
     Route: 042
     Dates: start: 20130118
  3. METHOTREXATE [Concomitant]
     Indication: RHEUMATOID ARTHRITIS
     Route: 065
     Dates: start: 2005
  4. PANTOPRAZOLE [Concomitant]
     Indication: GASTROINTESTINAL DISORDER THERAPY
     Route: 065
     Dates: start: 2009
  5. METFORMIN [Concomitant]
     Indication: DIABETES MELLITUS MANAGEMENT
     Route: 065
     Dates: start: 201111
  6. CLOPIDOGREL [Concomitant]
     Indication: THROMBOPHLEBITIS
     Route: 065
     Dates: start: 201111

REACTIONS (8)
  - Fistula [Recovered/Resolved]
  - Gingival blister [Recovered/Resolved]
  - Musculoskeletal disorder [Recovering/Resolving]
  - Pain in extremity [Recovered/Resolved]
  - Diarrhoea [Recovered/Resolved]
  - Decreased appetite [Recovered/Resolved]
  - Local swelling [Recovering/Resolving]
  - Rhinalgia [Unknown]
